FAERS Safety Report 21069699 (Version 1)
Quarter: 2022Q3

REPORT INFORMATION
  Report Type: Spontaneous
  Country: US (occurrence: US)
  Receive Date: 20220712
  Receipt Date: 20220712
  Transmission Date: 20221027
  Serious: No
  Sender: FDA-Public Use
  Company Number: US-ASTELLAS-2021US034514

PATIENT
  Age: 76 Year
  Sex: Female

DRUGS (2)
  1. MYRBETRIQ [Suspect]
     Active Substance: MIRABEGRON
     Indication: Bladder prolapse
     Route: 048
     Dates: start: 202106, end: 202107
  2. MYRBETRIQ [Suspect]
     Active Substance: MIRABEGRON
     Indication: Incontinence

REACTIONS (2)
  - Product use in unapproved indication [Unknown]
  - Inability to afford medication [Unknown]

NARRATIVE: CASE EVENT DATE: 20210601
